FAERS Safety Report 5282166-7 (Version None)
Quarter: 2007Q1

REPORT INFORMATION
  Report Type: 
  Country: None (occurrence: None)
  Receive Date: 20070330
  Receipt Date: 20070321
  Transmission Date: 20070707
  Serious: Yes (Other)
  Sender: FDA-Public Use
  Company Number: AU-PFIZER INC-2007011514

PATIENT
  Age: 60 Year
  Sex: Female

DRUGS (1)
  1. LIPITOR [Suspect]
     Indication: HYPERCHOLESTEROLAEMIA
     Route: 048

REACTIONS (1)
  - OROPHARYNGEAL SPASM [None]
